FAERS Safety Report 5190409-3 (Version None)
Quarter: 2006Q4

REPORT INFORMATION
  Report Type: 
  Country: None (occurrence: None)
  Receive Date: 20061222
  Receipt Date: 20061214
  Transmission Date: 20070319
  Serious: Yes (Hospitalization)
  Sender: FDA-Public Use
  Company Number: ITWYE840214DEC06

PATIENT
  Sex: Male

DRUGS (5)
  1. ENBREL [Suspect]
     Indication: PSORIATIC ARTHROPATHY
     Route: 058
     Dates: start: 20061121, end: 20061130
  2. ISONIAZID [Suspect]
     Indication: TUBERCULOSIS SKIN TEST POSITIVE
     Route: 048
     Dates: start: 20061020, end: 20061201
  3. CARVEDILOL [Concomitant]
     Dosage: 25 MG
     Route: 048
  4. FUROSEMIDE [Concomitant]
     Dosage: 25 MG
     Route: 048
  5. ENALAPRIL MALEATE [Concomitant]
     Dosage: 10 MG
     Route: 048

REACTIONS (1)
  - ERYTHRODERMIC PSORIASIS [None]
